FAERS Safety Report 4860146-0 (Version None)
Quarter: 2005Q4

REPORT INFORMATION
  Report Type: 
  Country: None (occurrence: None)
  Receive Date: 20051219
  Receipt Date: 20050916
  Transmission Date: 20060501
  Serious: Yes (Death)
  Sender: FDA-Public Use
  Company Number: US-MERCK-0509USA02683

PATIENT
  Age: 76 Year
  Sex: Male
  Weight: 75 kg

DRUGS (3)
  1. VIOXX [Suspect]
     Indication: OSTEOARTHRITIS
     Route: 048
     Dates: start: 20000201, end: 20000802
  2. WELLBUTRIN [Concomitant]
     Indication: DEPRESSION
     Route: 065
  3. ECOTRIN [Concomitant]
     Indication: PAIN
     Route: 065
     Dates: start: 19970101, end: 20000801

REACTIONS (1)
  - MYOCARDIAL INFARCTION [None]
